FAERS Safety Report 23604350 (Version 1)
Quarter: 2024Q1

REPORT INFORMATION
  Report Type: Report from Study
  Country: CN (occurrence: CN)
  Receive Date: 20240307
  Receipt Date: 20240307
  Transmission Date: 20240410
  Serious: Yes (Other)
  Sender: FDA-Public Use
  Company Number: CN-ABBVIE-5514636

PATIENT
  Age: 29 Year
  Sex: Male
  Weight: 53 kg

DRUGS (6)
  1. HUMIRA [Suspect]
     Active Substance: ADALIMUMAB
     Indication: Crohn^s disease
     Dosage: 40 MG FORM STRENGTH
     Route: 058
     Dates: start: 20230518, end: 20230613
  2. HUMIRA [Suspect]
     Active Substance: ADALIMUMAB
     Dosage: 40 MG FORM STRENGTH
     Route: 058
     Dates: start: 20230517, end: 20230517
  3. HUMIRA [Suspect]
     Active Substance: ADALIMUMAB
     Dosage: 40 MG FORM STRENGTH
     Route: 058
     Dates: start: 20230614, end: 20231121
  4. COMPOUND GLUTAMINE [Concomitant]
     Indication: Crohn^s disease
     Dosage: TIME INTERVAL: 0.33333333 DAYS: 6 GRAIN?ENTERSOLUBLE CAPSULES
     Dates: start: 20230910, end: 20231010
  5. ENTECAVIR [Concomitant]
     Active Substance: ENTECAVIR
     Indication: Chronic hepatitis B
     Dosage: 0.5 MILLIGRAM? DISPERSIBLE TABLETS
     Dates: start: 201506
  6. MESALAMINE [Concomitant]
     Active Substance: MESALAMINE
     Indication: Crohn^s disease
     Dosage: TIME INTERVAL: 0.33333333 DAYS: 0.75 GRAM?ENTERIC-COATED TABLETS
     Dates: start: 20230910, end: 20231010

REACTIONS (2)
  - Intestinal obstruction [Not Recovered/Not Resolved]
  - Arthralgia [Recovered/Resolved]

NARRATIVE: CASE EVENT DATE: 20230614
